FAERS Safety Report 4725549-3 (Version None)
Quarter: 2005Q3

REPORT INFORMATION
  Report Type: 
  Country: None (occurrence: None)
  Receive Date: 20050727
  Receipt Date: 20050224
  Transmission Date: 20060218
  Serious: Yes (Other)
  Sender: FDA-Public Use
  Company Number: JP-BOEHRINGER INGELHEIM PHARMACEUTICALS, INC.-2005-BP-03006NB

PATIENT
  Sex: Male
  Weight: 67 kg

DRUGS (6)
  1. MICARDIS [Suspect]
     Indication: ESSENTIAL HYPERTENSION
     Route: 048
     Dates: start: 20031216
  2. NORVASC [Concomitant]
     Indication: ESSENTIAL HYPERTENSION
     Route: 048
     Dates: start: 19980224
  3. CARDENALIN [Concomitant]
     Indication: ESSENTIAL HYPERTENSION
     Route: 048
     Dates: start: 19981203
  4. SALOBEL [Concomitant]
     Indication: HYPERURICAEMIA
     Route: 048
     Dates: start: 19920403
  5. TAGAMET [Concomitant]
     Indication: GASTRITIS
     Route: 048
     Dates: start: 19911015
  6. ULCERLMIN [Concomitant]
     Indication: GASTRITIS
     Route: 048
     Dates: start: 19860810

REACTIONS (1)
  - GASTROINTESTINAL STROMAL TUMOUR [None]
